FAERS Safety Report 8243469-7 (Version None)
Quarter: 2012Q1

REPORT INFORMATION
  Report Type: 
  Country: None (occurrence: None)
  Receive Date: 20120315
  Receipt Date: 20100317
  Transmission Date: 20120608
  Serious: No
  Sender: FDA-Public Use
  Company Number: PHHY2010US17151

PATIENT
  Sex: Male

DRUGS (1)
  1. FANAPT [Suspect]
     Dosage: UNK

REACTIONS (4)
  - NASAL CONGESTION [None]
  - DIZZINESS [None]
  - VISION BLURRED [None]
  - NIGHT SWEATS [None]
